FAERS Safety Report 12601428 (Version 1)
Quarter: 2016Q3

REPORT INFORMATION
  Report Type: Spontaneous
  Country: GB (occurrence: GB)
  Receive Date: 20160728
  Receipt Date: 20160728
  Transmission Date: 20161109
  Serious: Yes (Life-Threatening, Hospitalization, Other)
  Sender: FDA-Public Use
  Company Number: GB-ACCORD-042640

PATIENT
  Age: 66 Year
  Sex: Female

DRUGS (6)
  1. FOLINIC ACID [Concomitant]
     Active Substance: LEUCOVORIN
     Indication: SALVAGE THERAPY
  2. QUININE [Concomitant]
     Active Substance: QUININE
     Indication: MUSCLE SPASMS
     Dosage: AS NEEDED
  3. IBANDRONIC ACID [Concomitant]
     Active Substance: IBANDRONIC ACID
     Indication: METASTASES TO BONE
     Dosage: 50 MG, 1X/DAY
     Route: 048
     Dates: start: 20090804
  4. METHOTREXATE. [Suspect]
     Active Substance: METHOTREXATE
     Indication: METASTASES TO MENINGES
     Dosage: 12.5 MG, 2X/WEEK, ON 18-DEC-2009, WITHIN 48 HOURS OF SECOND DOSE OF MTX (SLOW PUSH OVER 1-2 MINUTES)
     Route: 037
     Dates: start: 20091216, end: 20091218
  5. COCODAMOL [Concomitant]
     Active Substance: ACETAMINOPHEN\CODEINE PHOSPHATE
     Dosage: 6 DOSES OF UNKNOWN STRENGTH EVERY 24 HOURS WHEN NEEDED
  6. TINZAPARIN/TINZAPARIN SODIUM [Concomitant]
     Indication: PULMONARY EMBOLISM
     Dosage: 13000 IU DAILY, HEPARIN-FRACTION/SODIUM SALT
     Route: 058
     Dates: start: 20091205

REACTIONS (4)
  - Pancytopenia [Recovered/Resolved]
  - Eczema asteatotic [Recovered/Resolved]
  - Clostridium difficile colitis [Recovered/Resolved]
  - Stomatitis [Recovered/Resolved]

NARRATIVE: CASE EVENT DATE: 20091218
